FAERS Safety Report 9367289 (Version 1)
Quarter: 2013Q2

REPORT INFORMATION
  Report Type: Spontaneous
  Country: CA (occurrence: CA)
  Receive Date: 20130625
  Receipt Date: 20130625
  Transmission Date: 20140414
  Serious: Yes (Other)
  Sender: FDA-Public Use
  Company Number: CA-009507513-1306CAN012227

PATIENT
  Age: 57 Year
  Sex: Male

DRUGS (1)
  1. VICTRELIS TRIPLE [Suspect]
     Indication: HEPATITIS C
     Dosage: UNK
     Route: 065
     Dates: start: 20120127, end: 20121228

REACTIONS (2)
  - Bone trimming [Unknown]
  - Tooth abscess [Unknown]
